FAERS Safety Report 15607541 (Version 2)
Quarter: 2019Q4

REPORT INFORMATION
  Report Type: Report from Study
  Country: US (occurrence: US)
  Receive Date: 20181112
  Receipt Date: 20191107
  Transmission Date: 20200122
  Serious: Yes (Death)
  Sender: FDA-Public Use
  Company Number: US-PFIZER INC-2018461576

PATIENT

DRUGS (12)
  1. PACLITAXEL. [Suspect]
     Active Substance: PACLITAXEL
     Dosage: 135 MG/M2, EVERY 3 WEEKS (DOSE LEVEL 4 ON DAY 1 OF 21 DAY CYCLE)
     Route: 042
  2. VEMURAFENIB. [Suspect]
     Active Substance: VEMURAFENIB
     Dosage: 720 MG, 2X/DAY (DOSE LEVEL 2, FOR 21 DAYS)
     Route: 048
  3. VEMURAFENIB. [Suspect]
     Active Substance: VEMURAFENIB
     Dosage: 720 MG, 2X/DAY (DOSE LEVEL 4, FOR 21 DAYS)
     Route: 048
  4. PACLITAXEL. [Suspect]
     Active Substance: PACLITAXEL
     Dosage: 135 MG/M2, EVERY 3 WEEKS (DOSE LEVEL 3 ON DAY 1 OF 21 DAY CYCLE)
     Route: 042
  5. CARBOPLATIN. [Suspect]
     Active Substance: CARBOPLATIN
     Indication: MALIGNANT MELANOMA
     Dosage: UNK, EVERY 3 WEEKS(AUC 5 , DAY 1 OF  EVERY 3 WK (DOSE LEVEL 1))
     Route: 042
  6. CARBOPLATIN. [Suspect]
     Active Substance: CARBOPLATIN
     Dosage: UNK, EVERY 3 WEEKS (AUC 5 IN DAY 1 OF EVERY 3 WKS (DOSE LEVEL 2))
     Route: 042
  7. CARBOPLATIN. [Suspect]
     Active Substance: CARBOPLATIN
     Dosage: UNK, EVERY 3 WEEKS (AUC 5 IN DAY 1 OF EVERY 3 WKS ((DOSE LEVEL 3))
     Route: 042
  8. PACLITAXEL. [Suspect]
     Active Substance: PACLITAXEL
     Indication: MALIGNANT MELANOMA
     Dosage: 100 MG/M2, EVERY 3 WEEKS (DOSE LEVEL 1 ON DAY 1 OF 21 DAY CYCLE)
     Route: 042
  9. CARBOPLATIN. [Suspect]
     Active Substance: CARBOPLATIN
     Dosage: UNK, EVERY 3 WEEKS (AUC 6  IN DAY 1 OF EVERY 3 WKS ((DOSE LEVEL 4))
     Route: 042
  10. PACLITAXEL. [Suspect]
     Active Substance: PACLITAXEL
     Dosage: 100 MG/M2, EVERY 3 WEEKS (DOSE LEVEL 2 ON DAY 1 OF 21 DAY CYCLE)
     Route: 042
  11. VEMURAFENIB. [Suspect]
     Active Substance: VEMURAFENIB
     Indication: MALIGNANT MELANOMA
     Dosage: 480 MG, 2X/DAY (DOSE LEVEL 1, FOR 21 DAYS)
     Route: 048
  12. VEMURAFENIB. [Suspect]
     Active Substance: VEMURAFENIB
     Dosage: 720 MG, 2X/DAY (DOSE LEVEL 3, FOR 21 DAYS)
     Route: 048

REACTIONS (1)
  - Haemorrhage intracranial [Fatal]
